FAERS Safety Report 22010036 (Version 12)
Quarter: 2024Q2

REPORT INFORMATION
  Report Type: Other
  Country: CA (occurrence: None)
  Receive Date: 20230220
  Receipt Date: 20240524
  Transmission Date: 20240716
  Serious: Yes (Hospitalization)
  Sender: FDA-Public Use
  Company Number: CA-ROCHE-3287494

PATIENT
  Sex: Female

DRUGS (3)
  1. OCREVUS [Suspect]
     Active Substance: OCRELIZUMAB
     Indication: Primary progressive multiple sclerosis
     Dosage: 300 MG AT DAY 0 AND 14, THEN 600 MG EVERY 6 MONTH
     Route: 042
     Dates: start: 20211110
  2. TYLENOL [Concomitant]
     Active Substance: ACETAMINOPHEN
  3. CODEINE [Concomitant]
     Active Substance: CODEINE

REACTIONS (7)
  - Blood potassium decreased [Recovered/Resolved]
  - Blood magnesium decreased [Recovered/Resolved]
  - Lower limb fracture [Not Recovered/Not Resolved]
  - Pneumonia [Recovered/Resolved]
  - Fall [Unknown]
  - Peroneal nerve palsy [Unknown]
  - Lacrimation increased [Unknown]
